FAERS Safety Report 8111149-4 (Version None)
Quarter: 2012Q1

REPORT INFORMATION
  Report Type: 
  Country: None (occurrence: None)
  Receive Date: 20120203
  Receipt Date: 20110517
  Transmission Date: 20120608
  Serious: No
  Sender: FDA-Public Use
  Company Number: US-GLAXOSMITHKLINE-A0927622A

PATIENT
  Sex: Female

DRUGS (4)
  1. CLINDAMYCIN [Concomitant]
  2. GEODON [Concomitant]
  3. LAMICTAL [Suspect]
     Indication: AFFECTIVE DISORDER
     Dosage: 200MG PER DAY
     Route: 048
     Dates: start: 20100101
  4. COGENTIN [Concomitant]

REACTIONS (1)
  - RASH [None]
